FAERS Safety Report 9989527 (Version 2)
Quarter: 2014Q1

REPORT INFORMATION
  Report Type: Report from Study
  Country: US (occurrence: US)
  Receive Date: 20140310
  Receipt Date: 20140310
  Transmission Date: 20141002
  Serious: No
  Sender: FDA-Public Use
  Company Number: US-ABBVIE-13P-163-1061811-00

PATIENT
  Age: 50 Year
  Sex: Female

DRUGS (28)
  1. HUMIRA [Suspect]
     Indication: PSORIATIC ARTHROPATHY
     Dates: start: 20130304, end: 20130610
  2. HUMIRA [Suspect]
     Indication: RHEUMATOID ARTHRITIS
     Dates: start: 20130610
  3. HUMIRA [Suspect]
     Indication: PSORIASIS
  4. CYTOMEL [Concomitant]
     Indication: HYPOTHYROIDISM
  5. SYNTHROID [Concomitant]
     Indication: HYPOTHYROIDISM
  6. TOPAMAX [Concomitant]
     Indication: PRODUCT USED FOR UNKNOWN INDICATION
     Dosage: 25MG AM, 75 MG QHS
  7. WELLBUTRIN [Concomitant]
     Indication: PRODUCT USED FOR UNKNOWN INDICATION
     Dosage: 450 MG DAILY
  8. MOTRIN [Concomitant]
     Indication: BACK PAIN
     Dosage: 600 MG
  9. MOTRIN [Concomitant]
     Indication: HEADACHE
  10. CYCLOBENZAPRINE [Concomitant]
     Indication: BACK PAIN
     Dosage: AT BEDTIME
  11. FIORINAL [Concomitant]
     Indication: HEADACHE
     Dosage: 2 CAPS EVERY 4-6 HOURS, 6-8 PER DAY
  12. FIORINAL [Concomitant]
     Indication: BACK PAIN
  13. MAXALT [Concomitant]
     Indication: HEADACHE
  14. MAXALT [Concomitant]
     Indication: MIGRAINE
  15. PHENERGAN [Concomitant]
     Indication: NAUSEA
     Dosage: 25 MG SUPPOSITORY
  16. PHENERGAN [Concomitant]
     Indication: MIGRAINE
  17. PHENERGAN [Concomitant]
     Indication: VOMITING
  18. ZOLPIDEM [Concomitant]
     Indication: INSOMNIA
     Dosage: AT BEDTIME
  19. OMEPRAZOLE [Concomitant]
     Indication: PROPHYLAXIS AGAINST GASTROINTESTINAL ULCER
  20. ZOFRAN [Concomitant]
     Indication: VOMITING
  21. ZOFRAN [Concomitant]
     Indication: NAUSEA
  22. ZYRTEC [Concomitant]
     Indication: HYPERSENSITIVITY
  23. EFFEXOR [Concomitant]
  24. PREDNISONE [Concomitant]
  25. IRON [Concomitant]
     Indication: ANAEMIA
  26. FOLIC ACID [Concomitant]
     Indication: ANAEMIA
  27. VENLAFAXINE [Concomitant]
     Indication: PRODUCT USED FOR UNKNOWN INDICATION
  28. VENLAFAXINE [Concomitant]

REACTIONS (20)
  - Malaise [Unknown]
  - Gait disturbance [Not Recovered/Not Resolved]
  - Arthralgia [Not Recovered/Not Resolved]
  - Injection site bruising [Recovered/Resolved]
  - Injection site pain [Unknown]
  - Injection site bruising [Unknown]
  - Injection site pain [Recovered/Resolved]
  - Hypersensitivity [Recovering/Resolving]
  - Injection site haemorrhage [Recovered/Resolved]
  - Contusion [Not Recovered/Not Resolved]
  - Nausea [Recovered/Resolved]
  - Vomiting [Recovered/Resolved]
  - Oedema peripheral [Not Recovered/Not Resolved]
  - Psoriasis [Recovering/Resolving]
  - Psoriatic arthropathy [Recovering/Resolving]
  - Arthralgia [Not Recovered/Not Resolved]
  - Joint swelling [Not Recovered/Not Resolved]
  - Joint stiffness [Not Recovered/Not Resolved]
  - Joint range of motion decreased [Not Recovered/Not Resolved]
  - Movement disorder [Not Recovered/Not Resolved]
